FAERS Safety Report 6746515-2 (Version None)
Quarter: 2010Q2

REPORT INFORMATION
  Report Type: 
  Country: None (occurrence: None)
  Receive Date: 20100528
  Receipt Date: 20091012
  Transmission Date: 20101027
  Serious: No
  Sender: FDA-Public Use
  Company Number: US-ASTRAZENECA-2009SE32014

PATIENT
  Sex: Female

DRUGS (9)
  1. PRILOSEC OTC [Suspect]
     Indication: DYSPEPSIA
     Route: 048
     Dates: start: 20090928
  2. ASPIRIN [Concomitant]
     Dosage: UNKNOWN
  3. CALCIUM CARBONATE [Concomitant]
     Dosage: UNKNOWN
  4. VITAMINS                           /90003601/ [Concomitant]
     Dosage: UNKNOWN
  5. PREDNISONE TAB [Concomitant]
     Dosage: UNKNOWN
  6. PERCOCET [Concomitant]
     Dosage: UNKNOWN
  7. MILACIN [Concomitant]
     Dosage: UNKNOWN
  8. FLEXERIL [Concomitant]
     Dosage: UNKNOWN
  9. INHALERS [Concomitant]
     Dosage: UNKNOWN

REACTIONS (3)
  - DRUG INEFFECTIVE [None]
  - EXPIRED DRUG ADMINISTERED [None]
  - GASTROOESOPHAGEAL REFLUX DISEASE [None]
